FAERS Safety Report 8008750-5 (Version None)
Quarter: 2011Q4

REPORT INFORMATION
  Report Type: 
  Country: None (occurrence: None)
  Receive Date: 20111227
  Receipt Date: 20111219
  Transmission Date: 20120403
  Serious: Yes (Hospitalization, Other)
  Sender: FDA-Public Use
  Company Number: US-BAYER-2011-027306

PATIENT
  Age: 25 Year
  Sex: Female
  Weight: 63.492 kg

DRUGS (20)
  1. PLAQUENIL [Concomitant]
     Dosage: 100 MG, BID
     Dates: start: 20101201
  2. PROBIOTICS [Concomitant]
     Indication: FUNGAL INFECTION
     Dosage: UNK
     Dates: start: 20101201
  3. TIGECYCLINE [Concomitant]
     Indication: BORRELIA INFECTION
  4. NYSTATIN [Concomitant]
     Dosage: 5 ML, UNK
  5. MEPRON [Concomitant]
     Dosage: 5 ML, BID
     Route: 048
  6. QUESTRAN [Concomitant]
  7. IBUPROFEN (ADVIL) [Concomitant]
  8. ZOLOFT [Concomitant]
     Dosage: UNK
     Dates: start: 20100101
  9. YASMIN [Suspect]
     Indication: ACNE
     Dosage: UNK
     Dates: start: 20060401
  10. YASMIN [Suspect]
     Indication: PREMENSTRUAL SYNDROME
  11. YASMIN [Suspect]
  12. DIFLUCAN [Concomitant]
     Indication: FUNGAL INFECTION
     Dosage: 200 MG, UNK
     Route: 048
     Dates: start: 20101201
  13. VITAMIN C [Concomitant]
  14. YASMIN [Suspect]
     Indication: ENDOMETRIOSIS
  15. NSAID'S [Concomitant]
  16. ROCEPHIN [Concomitant]
     Indication: BORRELIA INFECTION
  17. AZITHROMYCIN [Concomitant]
  18. CLINDAMYCIN [Concomitant]
  19. FLAGYL [Concomitant]
     Indication: DIARRHOEA
     Dosage: 500 MG, BID
     Dates: start: 20101201
  20. FEMCON FE [Concomitant]
     Route: 048

REACTIONS (17)
  - LYME DISEASE [None]
  - ANXIETY [None]
  - ANHEDONIA [None]
  - FUNGAL INFECTION [None]
  - GALLBLADDER DISORDER [None]
  - GENERAL PHYSICAL HEALTH DETERIORATION [None]
  - INJURY [None]
  - PAIN [None]
  - DIARRHOEA [None]
  - CHOLECYSTITIS CHRONIC [None]
  - DYSPNOEA [None]
  - BACK PAIN [None]
  - EMOTIONAL DISTRESS [None]
  - MENTAL DISORDER [None]
  - NAUSEA [None]
  - CHOLELITHIASIS [None]
  - SPLENOMEGALY [None]
